FAERS Safety Report 19160501 (Version 4)
Quarter: 2021Q2

REPORT INFORMATION
  Report Type: Spontaneous
  Country: JP (occurrence: JP)
  Receive Date: 20210421
  Receipt Date: 20210617
  Transmission Date: 20210717
  Serious: Yes (Hospitalization, Other)
  Sender: FDA-Public Use
  Company Number: JP-009507513-2104JPN000841J

PATIENT
  Age: 54 Year
  Sex: Male

DRUGS (1)
  1. KEYTRUDA [Suspect]
     Active Substance: PEMBROLIZUMAB
     Indication: LUNG SQUAMOUS CELL CARCINOMA STAGE IV
     Dosage: UNK
     Route: 041

REACTIONS (3)
  - Immune-mediated hepatic disorder [Unknown]
  - Type 1 diabetes mellitus [Unknown]
  - Secondary adrenocortical insufficiency [Recovering/Resolving]
